FAERS Safety Report 5794906-9 (Version None)
Quarter: 2008Q2

REPORT INFORMATION
  Report Type: 
  Country: None (occurrence: None)
  Receive Date: 20080627
  Receipt Date: 20080627
  Transmission Date: 20081010
  Serious: Yes (Hospitalization)
  Sender: FDA-Public Use
  Company Number: None

PATIENT
  Age: 70 Year
  Sex: Female
  Weight: 54.4316 kg

DRUGS (1)
  1. BONIVA [Suspect]
     Indication: ADVERSE DRUG REACTION
     Dosage: 150 MG 1X A MONTH PO
     Route: 048
     Dates: start: 20080616, end: 20080616

REACTIONS (8)
  - ABDOMINAL PAIN UPPER [None]
  - CARDIAC DISORDER [None]
  - DRUG INEFFECTIVE [None]
  - MALAISE [None]
  - MUSCULOSKELETAL STIFFNESS [None]
  - PAIN [None]
  - SCIATICA [None]
  - SCREAMING [None]
